FAERS Safety Report 9146879 (Version 1)
Quarter: 2013Q1

REPORT INFORMATION
  Report Type: Spontaneous
  Country: DK (occurrence: None)
  Receive Date: 20130205
  Receipt Date: 20130205
  Transmission Date: 20140127
  Serious: Yes (Death)
  Sender: FDA-Public Use
  Company Number: 2013MA00878

PATIENT
  Age: 72 Year
  Sex: Female

DRUGS (6)
  1. DONEPEZIL HYDROCHLORIDE TABLETS 10MG (APMPL) [Suspect]
     Indication: DEMENTIA WITH LEWY BODIES
  2. ADCAL-D3 [Concomitant]
  3. ENOXAPARIN [Concomitant]
  4. MAGNESIUM HYDROXIDE [Concomitant]
  5. SENNOSIDES [Concomitant]
  6. PARACETAMOL [Concomitant]

REACTIONS (1)
  - Gastrointestinal haemorrhage [None]
